FAERS Safety Report 4823518-6 (Version None)
Quarter: 2005Q4

REPORT INFORMATION
  Report Type: 
  Country: None (occurrence: None)
  Receive Date: 20051107
  Receipt Date: 20051026
  Transmission Date: 20060501
  Serious: Yes (Life-Threatening, Hospitalization)
  Sender: FDA-Public Use
  Company Number: 2005061741

PATIENT
  Age: 8 Year
  Sex: Female
  Weight: 21 kg

DRUGS (16)
  1. SOLU-MEDROL [Suspect]
     Indication: ILL-DEFINED DISORDER
     Dosage: 60 MG (20 MG, 3 IN 1 D), INTRAVENOUS
     Route: 042
     Dates: start: 20050205
  2. ACYCLOVIR [Suspect]
     Indication: PROPHYLAXIS
     Dates: start: 20050216
  3. AMBISOME [Suspect]
     Indication: CANDIDIASIS
     Dosage: 60 MG ( 1 IN 1 D), INTRAVENOUS
     Route: 042
     Dates: start: 20050220, end: 20050225
  4. CEFTAZIDIME PENTAHYDRATE [Suspect]
     Indication: PROPHYLAXIS
     Dosage: INTRAVENOUS
     Route: 042
     Dates: start: 20050218
  5. AMIKIN [Suspect]
     Indication: PROPHYLAXIS
     Dosage: 300 MG (1 D), INTRAVENOUS
     Route: 042
     Dates: start: 20050218, end: 20050225
  6. GANCICLOVIR [Suspect]
     Indication: PROPHYLAXIS
     Dosage: 200 MG (500 MG, 1 D), INTRAVENOUS
     Route: 042
     Dates: start: 20050220, end: 20050222
  7. FUROSEMIDE [Concomitant]
  8. HEPARIN SODIUM [Concomitant]
  9. CYCLOSPORINE [Concomitant]
  10. DEXCHLORPHENIRAMINE MALEATE [Concomitant]
  11. VANCOMYCIN HYDROCHLORIDE [Concomitant]
  12. PARACETAMOL (PARACETAMOL) [Concomitant]
  13. OMEPRAZOLE [Concomitant]
  14. SPASFON (PHLOROGLUCINOL, TRIMETHYLPHLOROGLUCINOL) [Concomitant]
  15. IMMUNOGLOBULINES HUMAINES CNTS (IMMUNOGLOBULIN HUMAN NORMAL) [Concomitant]
  16. MORPHINE [Concomitant]

REACTIONS (2)
  - BRADYCARDIA [None]
  - HYPOKALAEMIA [None]
